FAERS Safety Report 17427532 (Version 8)
Quarter: 2020Q2

REPORT INFORMATION
  Report Type: Spontaneous
  Country: DE (occurrence: DE)
  Receive Date: 20200217
  Receipt Date: 20200603
  Transmission Date: 20200713
  Serious: Yes (Death, Life-Threatening, Hospitalization, Other)
  Sender: FDA-Public Use
  Company Number: NVSC2020DE041400

PATIENT
  Age: 72 Year
  Sex: Male
  Weight: 57.8 kg

DRUGS (5)
  1. EVEROLIMUS. [Suspect]
     Active Substance: EVEROLIMUS
     Indication: HEART TRANSPLANT
     Dosage: 2 TIMES 1.5 MG DAILY, PER OS
     Route: 048
  2. EVEROLIMUS. [Suspect]
     Active Substance: EVEROLIMUS
     Indication: CHRONIC KIDNEY DISEASE
  3. EVEROLIMUS. [Suspect]
     Active Substance: EVEROLIMUS
     Indication: IMMUNOSUPPRESSANT DRUG THERAPY
     Dosage: 1.5 MILLIGRAM. 0.5 DAY
     Route: 048
  4. MYCOPHENOLATE MOFETIL. [Suspect]
     Active Substance: MYCOPHENOLATE MOFETIL
     Indication: PRODUCT USED FOR UNKNOWN INDICATION
     Dosage: 720 MILLIGRAM, 0.5 DAY
     Route: 048
  5. EVEROLIMUS. [Suspect]
     Active Substance: EVEROLIMUS
     Indication: IMMUNOSUPPRESSION

REACTIONS (15)
  - Interstitial lung disease [Recovering/Resolving]
  - Pneumonitis [Recovering/Resolving]
  - Pyrexia [Not Recovered/Not Resolved]
  - Acute respiratory distress syndrome [Fatal]
  - Bronchitis chronic [Not Recovered/Not Resolved]
  - Iatrogenic injury [Not Recovered/Not Resolved]
  - Pneumonia [Recovering/Resolving]
  - Superinfection viral [Recovered/Resolved]
  - Disease progression [Not Recovered/Not Resolved]
  - Acute respiratory failure [Fatal]
  - Metapneumovirus infection [Recovering/Resolving]
  - Superinfection [Recovering/Resolving]
  - Cough [Not Recovered/Not Resolved]
  - Dyspnoea [Recovering/Resolving]
  - Traumatic lung injury [Recovering/Resolving]
